FAERS Safety Report 22146806 (Version 1)
Quarter: 2023Q1

REPORT INFORMATION
  Report Type: Spontaneous
  Country: CN (occurrence: CN)
  Receive Date: 20230328
  Receipt Date: 20230328
  Transmission Date: 20230418
  Serious: Yes (Life-Threatening, Hospitalization, Other)
  Sender: FDA-Public Use
  Company Number: CN-PFIZER INC-PV202300056122

PATIENT
  Age: 51 Year
  Sex: Male
  Weight: 70 kg

DRUGS (2)
  1. METHYLPREDNISOLONE SODIUM SUCCINATE [Suspect]
     Active Substance: METHYLPREDNISOLONE SODIUM SUCCINATE
     Indication: Paroxysmal nocturnal haemoglobinuria
     Dosage: 60 MG, 2X/DAY
     Route: 042
  2. SODIUM BICARBONATE [Suspect]
     Active Substance: SODIUM BICARBONATE
     Indication: Paroxysmal nocturnal haemoglobinuria
     Dosage: 100 ML, 2X/DAY (5 %)

REACTIONS (2)
  - Thrombotic microangiopathy [Unknown]
  - Off label use [Unknown]
